FAERS Safety Report 11855895 (Version 1)
Quarter: 2015Q4

REPORT INFORMATION
  Report Type: Other
  Country: US (occurrence: US)
  Receive Date: 20151221
  Receipt Date: 20151221
  Transmission Date: 20160305
  Serious: Yes (Other)
  Sender: FDA-Public Use
  Company Number: US-DEP_13237_2015

PATIENT
  Age: 49 Year
  Sex: Female

DRUGS (2)
  1. NUCYNTA ER [Suspect]
     Active Substance: TAPENTADOL HYDROCHLORIDE
     Indication: PAIN
     Route: 048
     Dates: start: 2010
  2. NUCYNTA [Suspect]
     Active Substance: TAPENTADOL HYDROCHLORIDE
     Indication: PAIN
     Route: 048
     Dates: start: 2010

REACTIONS (4)
  - Medication error [Unknown]
  - Surgery [Recovered/Resolved]
  - Spinal fusion surgery [Recovered/Resolved]
  - Therapeutic procedure [Recovered/Resolved]

NARRATIVE: CASE EVENT DATE: 2010
